FAERS Safety Report 4915508-X (Version None)
Quarter: 2006Q1

REPORT INFORMATION
  Report Type: 
  Country: None (occurrence: None)
  Receive Date: 20060217
  Receipt Date: 20050414
  Transmission Date: 20060701
  Serious: Yes (Hospitalization, Disabling)
  Sender: FDA-Public Use
  Company Number: US-MERCK-0504USA02968

PATIENT
  Sex: Female
  Weight: 82 kg

DRUGS (1)
  1. VIOXX [Suspect]
     Indication: PAIN
     Route: 048
     Dates: start: 19990101, end: 20020201

REACTIONS (5)
  - BACK PAIN [None]
  - GASTRIC DISORDER [None]
  - MIGRAINE [None]
  - MUSCLE STRAIN [None]
  - RENAL FAILURE [None]
